FAERS Safety Report 9260918 (Version 1)
Quarter: 2013Q2

REPORT INFORMATION
  Report Type: Spontaneous
  Country: US (occurrence: US)
  Receive Date: 20130429
  Receipt Date: 20130429
  Transmission Date: 20140414
  Serious: No
  Sender: FDA-Public Use
  Company Number: US-AMGEN-USASP2011054265

PATIENT
  Age: 61 Year
  Sex: Male
  Weight: 64.5 kg

DRUGS (5)
  1. SENSIPAR [Suspect]
     Indication: PRODUCT USED FOR UNKNOWN INDICATION
     Dosage: 30 MG, QD
     Route: 048
     Dates: start: 20110215, end: 20110225
  2. SENSIPAR [Suspect]
     Dosage: 30 MG, QD
     Route: 048
     Dates: start: 20110301, end: 20110315
  3. RENAGEL [Concomitant]
     Dosage: UNK
  4. SIMVASTATIN [Concomitant]
     Dosage: UNK
  5. CLONIDINE [Concomitant]
     Dosage: UNK

REACTIONS (4)
  - Muscular weakness [Recovered/Resolved]
  - Pain in extremity [Recovered/Resolved]
  - Fatigue [Recovered/Resolved]
  - Myalgia [Recovered/Resolved]
